FAERS Safety Report 11233763 (Version 2)
Quarter: 2015Q3

REPORT INFORMATION
  Report Type: Spontaneous
  Country: BE (occurrence: BE)
  Receive Date: 20150702
  Receipt Date: 20150731
  Transmission Date: 20151125
  Serious: Yes (Other)
  Sender: FDA-Public Use
  Company Number: BE-AMGEN-BELSP2015064130

PATIENT
  Age: 73 Year
  Sex: Male
  Weight: 84 kg

DRUGS (15)
  1. ZOLADEX [Concomitant]
     Active Substance: GOSERELIN ACETATE
     Indication: PROSTATE CANCER
     Dosage: 10.8 MG, Q3MO
     Route: 058
     Dates: start: 201403
  2. PANTOMED                           /01263204/ [Concomitant]
     Active Substance: PANTOPRAZOLE SODIUM
     Indication: DYSPEPSIA
     Dosage: 20 MG, QD
     Route: 048
  3. CALCI PLUS                         /00751501/ [Concomitant]
     Indication: CONSTIPATION
     Dosage: 1 DF, QD
  4. BISOPROLOL [Concomitant]
     Active Substance: BISOPROLOL
     Indication: TREMOR
     Dosage: 5 MG, QD
     Route: 048
  5. ZYTIGA [Concomitant]
     Active Substance: ABIRATERONE ACETATE
     Indication: PROSTATE CANCER
     Dosage: 250 MG, QID
     Route: 048
     Dates: start: 20140918
  6. PREDNISONE. [Concomitant]
     Active Substance: PREDNISONE
     Dosage: 5 MG, BID
     Route: 048
     Dates: start: 20140918
  7. FLUTAMIDE. [Concomitant]
     Active Substance: FLUTAMIDE
     Dosage: UNK
     Dates: start: 201209, end: 201406
  8. TERBINAFINE TEVA                   /00992601/ [Concomitant]
     Indication: ONYCHOMYCOSIS
     Dosage: 250 MG, QD
  9. CASODEX [Concomitant]
     Active Substance: BICALUTAMIDE
     Dosage: UNK
     Dates: start: 201406
  10. EXACYL [Concomitant]
     Active Substance: TRANEXAMIC ACID
     Dosage: 1 G, UNK
  11. LIPITOR [Concomitant]
     Active Substance: ATORVASTATIN CALCIUM
     Dosage: 20 MG, QD
  12. XGEVA [Suspect]
     Active Substance: DENOSUMAB
     Indication: PROSTATE CANCER METASTATIC
     Dosage: 120 MG, Q4WK
     Route: 058
     Dates: start: 201404, end: 201505
  13. REPARIL                            /00337201/ [Concomitant]
     Dosage: 2 DF, QD
  14. XGEVA [Suspect]
     Active Substance: DENOSUMAB
     Indication: METASTASES TO BONE
  15. AERIUS [Concomitant]
     Active Substance: DESLORATADINE
     Dosage: 1 DF, QD

REACTIONS (5)
  - Blood pressure fluctuation [Unknown]
  - Chest discomfort [Unknown]
  - Haematuria [Unknown]
  - Osteonecrosis of jaw [Not Recovered/Not Resolved]
  - Prostatic specific antigen increased [Unknown]

NARRATIVE: CASE EVENT DATE: 20140918
